FAERS Safety Report 7186576-2 (Version None)
Quarter: 2010Q4

REPORT INFORMATION
  Report Type: 
  Country: None (occurrence: None)
  Receive Date: 20101222
  Receipt Date: 20100623
  Transmission Date: 20110411
  Serious: Yes (Other)
  Sender: FDA-Public Use
  Company Number: US-AMGEN-QUU418059

PATIENT

DRUGS (17)
  1. ENBREL [Suspect]
     Indication: PRODUCT USED FOR UNKNOWN INDICATION
     Dosage: 50 MG, QWK
     Route: 058
     Dates: start: 19990301, end: 20100101
  2. NEUPOGEN [Suspect]
  3. NABUMETONE [Concomitant]
     Dosage: UNK UNK, UNK
     Dates: start: 20060101
  4. HYDROXYCHLOROQUINE SULFATE [Concomitant]
     Dosage: UNK UNK, UNK
     Dates: start: 20060101
  5. LEVOTHYROXINE SODIUM [Concomitant]
     Dosage: 175 A?G, QD
  6. ROSUVASTATIN CALCIUM [Concomitant]
  7. IBUPROFEN [Concomitant]
  8. ACTONEL [Concomitant]
  9. PANTOPRAZOLE SODIUM [Concomitant]
     Dosage: 40 MG, QD
  10. HYDROCHLOROTHIAZIDE [Concomitant]
     Dosage: 200 MG, QD
  11. ASPIRIN [Concomitant]
     Dosage: 81 MG, QD
  12. TOPROL-XL [Concomitant]
     Dosage: 75 MG, QD
  13. FOLIC ACID [Concomitant]
     Dosage: 400 MG, QD
  14. ASCORBIC ACID [Concomitant]
     Dosage: 500 MG, QD
  15. GLUCOSAMINE W/CHONDROITIN SULFATES [Concomitant]
  16. NAPROXEN SODIUM [Concomitant]
  17. CIPROFLOXACIN HYDROCHLORIDE [Concomitant]

REACTIONS (12)
  - BONE PAIN [None]
  - CHOKING [None]
  - DIFFUSE LARGE B-CELL LYMPHOMA STAGE IV [None]
  - FATIGUE [None]
  - FEBRILE NEUTROPENIA [None]
  - MYALGIA [None]
  - NAUSEA [None]
  - NEUROTOXICITY [None]
  - NIGHT SWEATS [None]
  - PAROSMIA [None]
  - PYREXIA [None]
  - WEIGHT DECREASED [None]
